FAERS Safety Report 23521385 (Version 3)
Quarter: 2024Q1

REPORT INFORMATION
  Report Type: Spontaneous
  Country: FR (occurrence: FR)
  Receive Date: 20240214
  Receipt Date: 20240329
  Transmission Date: 20240410
  Serious: Yes (Hospitalization)
  Sender: FDA-Public Use
  Company Number: FR-GILEAD-2024-0660279

PATIENT
  Sex: Male
  Weight: 76 kg

DRUGS (16)
  1. CARBOPLATIN [Suspect]
     Active Substance: CARBOPLATIN
     Indication: Non-small cell lung cancer metastatic
     Dosage: 560 MILLIGRAM
     Route: 042
     Dates: start: 20231227, end: 20231227
  2. CARBOPLATIN [Suspect]
     Active Substance: CARBOPLATIN
     Dosage: 710 MILLIGRAM
     Route: 042
     Dates: start: 20240117
  3. PEMETREXED [Suspect]
     Active Substance: PEMETREXED
     Indication: Non-small cell lung cancer
     Dosage: 950 MILLIGRAM
     Route: 042
     Dates: start: 20231227, end: 20231227
  4. PEMETREXED [Suspect]
     Active Substance: PEMETREXED
     Dosage: 925 MILLIGRAM
     Route: 042
     Dates: start: 20240117
  5. DOMVANALIMAB [Suspect]
     Active Substance: DOMVANALIMAB
     Indication: Non-small cell lung cancer metastatic
     Dosage: 1200 MILLIGRAM
     Route: 042
     Dates: start: 20231227, end: 20231227
  6. DOMVANALIMAB [Suspect]
     Active Substance: DOMVANALIMAB
     Dosage: 1200 MILLIGRAM
     Route: 042
     Dates: start: 20240117
  7. ZIMBERELIMAB [Suspect]
     Active Substance: ZIMBERELIMAB
     Indication: Non-small cell lung cancer metastatic
     Dosage: 360 MILLIGRAM
     Route: 042
     Dates: start: 20231227, end: 20231227
  8. ZIMBERELIMAB [Suspect]
     Active Substance: ZIMBERELIMAB
     Dosage: 360 MILLIGRAM
     Route: 042
     Dates: start: 20240117
  9. PEGFILGRASTIM [Concomitant]
     Active Substance: PEGFILGRASTIM
     Indication: Thrombocytopenia
     Dosage: UNK
     Route: 058
     Dates: start: 20240117
  10. INDAPAMIDE\PERINDOPRIL [Concomitant]
     Active Substance: INDAPAMIDE\PERINDOPRIL
     Indication: Hypertension
     Dosage: UNK
     Route: 048
     Dates: start: 2020
  11. ACETAMINOPHEN [Concomitant]
     Active Substance: ACETAMINOPHEN
     Indication: Pain
     Dosage: UNK
     Route: 048
     Dates: start: 20231116
  12. TENOFOVIR DISOPROXIL FUMARATE [Concomitant]
     Active Substance: TENOFOVIR DISOPROXIL FUMARATE
     Indication: Hepatitis B
     Dosage: UNK
     Route: 048
     Dates: start: 20231227
  13. OXYCODONE HYDROCHLORIDE [Concomitant]
     Active Substance: OXYCODONE HYDROCHLORIDE
     Indication: Pain
     Dosage: UNK
     Route: 048
     Dates: start: 20231116
  14. METHYLPREDNISOLONE [Concomitant]
     Active Substance: METHYLPREDNISOLONE
     Indication: Premedication
     Dosage: UNK
     Route: 042
     Dates: start: 20231227, end: 20231227
  15. METHYLPREDNISOLONE [Concomitant]
     Active Substance: METHYLPREDNISOLONE
     Dosage: UNK
     Route: 042
     Dates: start: 20240117
  16. OXYCONTIN [Concomitant]
     Active Substance: OXYCODONE HYDROCHLORIDE
     Indication: Pain
     Dosage: UNK
     Route: 048
     Dates: start: 20231116

REACTIONS (2)
  - Dehydration [Recovered/Resolved]
  - Oral fungal infection [Recovered/Resolved]

NARRATIVE: CASE EVENT DATE: 20240101
